FAERS Safety Report 13367779 (Version 1)
Quarter: 2017Q1

REPORT INFORMATION
  Report Type: Spontaneous
  Country: SA (occurrence: SA)
  Receive Date: 20170324
  Receipt Date: 20170324
  Transmission Date: 20170429
  Serious: Yes (Hospitalization, Other)
  Sender: FDA-Public Use
  Company Number: SA-ALEXION PHARMACEUTICALS INC.-A201702752

PATIENT
  Age: 2 Year
  Sex: Female

DRUGS (7)
  1. SEBELIPASE ALFA [Suspect]
     Active Substance: SEBELIPASE ALFA
     Dosage: 5 MG/KG, Q2W
     Route: 042
  2. SEBELIPASE ALFA [Suspect]
     Active Substance: SEBELIPASE ALFA
     Dosage: 5 MG/KG, Q2W, WEEK 37 TO WEEK 68
     Route: 042
  3. SEBELIPASE ALFA [Suspect]
     Active Substance: SEBELIPASE ALFA
     Indication: LYSOSOMAL ACID LIPASE DEFICIENCY
     Dosage: UNK
     Route: 042
  4. SEBELIPASE ALFA [Suspect]
     Active Substance: SEBELIPASE ALFA
     Dosage: 5 MG/KG, QW FROM WEEK 20 TO WEEK 36
     Route: 042
  5. CYCLOSPORINE. [Suspect]
     Active Substance: CYCLOSPORINE
     Indication: HISTIOCYTOSIS HAEMATOPHAGIC
     Route: 065
  6. SEBELIPASE ALFA [Suspect]
     Active Substance: SEBELIPASE ALFA
     Dosage: 1 MG/KG, QW
     Route: 042
  7. SEBELIPASE ALFA [Suspect]
     Active Substance: SEBELIPASE ALFA
     Dosage: 3 MG/KG, QW FOR 10 WEEKS
     Route: 042

REACTIONS (11)
  - Leukopenia [Unknown]
  - Urinary tract infection [Unknown]
  - Refractory cytopenia with unilineage dysplasia [Unknown]
  - Histiocytosis haematophagic [Unknown]
  - Toxicity to various agents [Unknown]
  - Salmonella bacteraemia [Unknown]
  - Rash [Unknown]
  - Serum ferritin increased [Unknown]
  - Incorrect dose administered [Unknown]
  - Inappropriate schedule of drug administration [Recovered/Resolved]
  - Hepatosplenomegaly [Unknown]
